FAERS Safety Report 7642027-2 (Version None)
Quarter: 2011Q3

REPORT INFORMATION
  Report Type: 
  Country: None (occurrence: None)
  Receive Date: 20110728
  Receipt Date: 20110725
  Transmission Date: 20111222
  Serious: Yes (Disabling)
  Sender: FDA-Public Use
  Company Number: US-MERCK-1107USA03465

PATIENT
  Sex: Female

DRUGS (3)
  1. FOSAMAX [Suspect]
     Route: 048
  2. RECLAST [Suspect]
     Route: 065
  3. FOSAMAX [Suspect]
     Route: 048

REACTIONS (4)
  - OSTEOPOROSIS [None]
  - FEMUR FRACTURE [None]
  - LOW TURNOVER OSTEOPATHY [None]
  - STRESS FRACTURE [None]
